FAERS Safety Report 4778444-8 (Version None)
Quarter: 2005Q3

REPORT INFORMATION
  Report Type: 
  Country: None (occurrence: None)
  Receive Date: 20050926
  Receipt Date: 20050916
  Transmission Date: 20060218
  Serious: Yes (Hospitalization)
  Sender: FDA-Public Use
  Company Number: US-SANOFI-SYNTHELABO-A03200502950

PATIENT
  Age: 53 Year
  Sex: Female

DRUGS (3)
  1. ELOXATIN [Suspect]
     Indication: RECTAL CANCER
     Route: 042
     Dates: start: 20050907, end: 20050907
  2. FLUOROURACIL [Concomitant]
     Route: 042
  3. LEUCOVORIN [Concomitant]
     Route: 042

REACTIONS (5)
  - DYSARTHRIA [None]
  - DYSPHAGIA [None]
  - MUSCULAR WEAKNESS [None]
  - THROAT TIGHTNESS [None]
  - TRANSIENT ISCHAEMIC ATTACK [None]
